FAERS Safety Report 6146868-2 (Version None)
Quarter: 2009Q2

REPORT INFORMATION
  Report Type: 
  Country: None (occurrence: None)
  Receive Date: 20090406
  Receipt Date: 20090406
  Transmission Date: 20091009
  Serious: Yes (Hospitalization)
  Sender: FDA-Public Use
  Company Number: None

PATIENT
  Sex: Male
  Weight: 94 kg

DRUGS (4)
  1. SORAFENIB, 200 MG, BAYER PHARMACEUTICALS [Suspect]
     Indication: MALIGNANT MELANOMA
     Dosage: 200 MG BID PO
     Route: 048
     Dates: start: 20090302, end: 20090315
  2. MELPHALAN (CHEMO) [Suspect]
     Dosage: 49.0 MG ONCE ILI
     Dates: start: 20090309
  3. XANAX [Concomitant]
  4. VIAGRA [Concomitant]

REACTIONS (2)
  - ARTERIAL THROMBOSIS LIMB [None]
  - PYREXIA [None]
